FAERS Safety Report 24816883 (Version 1)
Quarter: 2025Q1

REPORT INFORMATION
  Report Type: Spontaneous
  Country: JP (occurrence: None)
  Receive Date: 20250107
  Receipt Date: 20250107
  Transmission Date: 20250408
  Serious: Yes (Other)
  Sender: ENCUBE ETHICALS
  Company Number: JP-Encube-001558

PATIENT
  Age: 48 Year
  Sex: Male

DRUGS (8)
  1. LIDOCAINE [Suspect]
     Active Substance: LIDOCAINE
     Indication: Endotracheal intubation
  2. LIDOCAINE HYDROCHLORIDE AND EPINEPHRINE BITARTRATE [Suspect]
     Active Substance: EPINEPHRINE BITARTRATE\LIDOCAINE HYDROCHLORIDE
     Indication: Local anaesthesia
  3. REMIMAZOLAM [Concomitant]
     Active Substance: REMIMAZOLAM
     Indication: General anaesthesia
  4. ROCURONIUM [Concomitant]
     Active Substance: ROCURONIUM BROMIDE
     Indication: General anaesthesia
  5. REMIFENTANIL [Concomitant]
     Active Substance: REMIFENTANIL
     Indication: General anaesthesia
  6. FENTANYL [Concomitant]
     Active Substance: FENTANYL
     Indication: General anaesthesia
  7. LIDOCAINE [Suspect]
     Active Substance: LIDOCAINE
     Indication: Anaesthesia
  8. LIDOCAINE [Suspect]
     Active Substance: LIDOCAINE
     Indication: General anaesthesia

REACTIONS (4)
  - Local anaesthetic systemic toxicity [Recovered/Resolved]
  - Seizure [Recovered/Resolved]
  - Electrocardiogram QT prolonged [Recovered/Resolved]
  - Electrocardiogram QRS complex prolonged [Recovered/Resolved]
